FAERS Safety Report 9221795 (Version 1)
Quarter: 2013Q1

REPORT INFORMATION
  Report Type: Spontaneous
  Country: US (occurrence: None)
  Receive Date: 20120831
  Receipt Date: 20120831
  Transmission Date: 20140127
  Serious: Yes (Other)
  Sender: FDA-Public Use
  Company Number: 163-22393-12061420

PATIENT
  Age: 72 Year
  Sex: Female
  Weight: 70.76 kg

DRUGS (5)
  1. ISTODAX [Suspect]
     Indication: PERIPHERAL T-CELL LYMPHOMA UNSPECIFIED
     Route: 042
     Dates: start: 20120602, end: 20120602
  2. PREMARIN (ESTROGENS CONJUGATED) (UNKNOWN) [Concomitant]
  3. SIMVASTATIN [Concomitant]
  4. XANAX (ALPRAZOLAM) (UNKNOWN) [Concomitant]
  5. PAXIL (PAROXETINE HYDROCHLORIDE) (UNKNOWN) [Concomitant]

REACTIONS (2)
  - Neutropenia [None]
  - Rash pruritic [None]
